FAERS Safety Report 8584721-5 (Version None)
Quarter: 2012Q3

REPORT INFORMATION
  Report Type: 
  Country: None (occurrence: None)
  Receive Date: 20120730
  Receipt Date: 20120719
  Transmission Date: 20120928
  Serious: Yes (Disabling)
  Sender: FDA-Public Use
  Company Number: DSA_58617_2012

PATIENT
  Sex: Male

DRUGS (6)
  1. CLINDAMYCIN PHOSPHATE [Suspect]
     Indication: PRODUCT USED FOR UNKNOWN INDICATION
     Dosage: (DF)
     Dates: start: 20120426
  2. RAMIPRIL [Concomitant]
  3. METRONIDAZOLE [Suspect]
     Indication: TOOTH INFECTION
     Dosage: (DF THREE TIMES DAILY)
     Dates: start: 20120416, end: 20120421
  4. SIMVASTATIN [Concomitant]
  5. CO-AMOXICLAV-CLAVULIN) (NOT SPECIFIED) [Suspect]
     Indication: TOOTH INFECTION
     Dosage: (250/125 THREE TIMES DAILY (DOSE UNSPECIFIED))
     Dates: start: 20120416, end: 20120421
  6. BETAHISTINE DIHYDROCHLORIDE [Concomitant]

REACTIONS (1)
  - HEPATITIS ACUTE [None]
